FAERS Safety Report 16975557 (Version 1)
Quarter: 2019Q4

REPORT INFORMATION
  Report Type: Spontaneous
  Country: CA (occurrence: CA)
  Receive Date: 20191030
  Receipt Date: 20191030
  Transmission Date: 20200122
  Serious: Yes (Other)
  Sender: FDA-Public Use
  Company Number: CA-PFIZER INC-2019462798

PATIENT
  Age: 62 Year
  Sex: Female

DRUGS (6)
  1. NAPROXEN. [Concomitant]
     Active Substance: NAPROXEN
     Dosage: 500 MG, UNK
  2. XELJANZ [Suspect]
     Active Substance: TOFACITINIB CITRATE
     Indication: RHEUMATOID ARTHRITIS
     Dosage: 5 MG, 2X/DAY
     Route: 048
     Dates: start: 20190814, end: 20191023
  3. RISEDRONATE [Concomitant]
     Active Substance: RISEDRONATE SODIUM
     Dosage: UNK
  4. VITAMIN D [VITAMIN D NOS] [Concomitant]
     Active Substance: VITAMIN D NOS
     Dosage: 50000 IU, 1X/DAY
  5. ACTONEL [Concomitant]
     Active Substance: RISEDRONATE SODIUM
     Dosage: UNK
  6. SYNTHROID [Concomitant]
     Active Substance: LEVOTHYROXINE SODIUM
     Dosage: UNK

REACTIONS (3)
  - Lower respiratory tract infection [Unknown]
  - Immunodeficiency [Unknown]
  - Drug ineffective [Unknown]

NARRATIVE: CASE EVENT DATE: 201910
